FAERS Safety Report 15757646 (Version 2)
Quarter: 2025Q3

REPORT INFORMATION
  Report Type: Spontaneous
  Country: EU (occurrence: EU)
  Receive Date: 20181225
  Receipt Date: 20250720
  Transmission Date: 20251021
  Serious: Yes (Other)
  Sender: AUROBINDO
  Company Number: EU-AUROBINDO-AUR-APL-2016-10247

PATIENT
  Age: 40 Year
  Sex: Male

DRUGS (1)
  1. CLOZAPINE [Suspect]
     Active Substance: CLOZAPINE
     Indication: Schizophrenia
     Dosage: 150 MILLIGRAM, ONCE A DAY (MEAN PLASMA LEVEL = ~0.20 MG/L, THERAPEUTIC LEVELS= 0.20?0.60 MG/L
     Route: 065

REACTIONS (2)
  - Parkinsonism [Recovering/Resolving]
  - Myoclonus [Recovering/Resolving]
